FAERS Safety Report 18486763 (Version 1)
Quarter: 2020Q4

REPORT INFORMATION
  Report Type: Spontaneous
  Country: CN (occurrence: CN)
  Receive Date: 20201110
  Receipt Date: 20201110
  Transmission Date: 20210114
  Serious: Yes (Hospitalization, Other)
  Sender: FDA-Public Use
  Company Number: CN-PFIZER INC-2020439248

PATIENT
  Age: 50 Year
  Sex: Female
  Weight: 65 kg

DRUGS (3)
  1. CELEBREX [Suspect]
     Active Substance: CELECOXIB
     Indication: ANALGESIC THERAPY
  2. CELEBREX [Suspect]
     Active Substance: CELECOXIB
     Indication: INFLAMMATION
     Dosage: 0.2 G, 1X/DAY
     Route: 048
     Dates: start: 20201027, end: 20201027
  3. YI YU [Suspect]
     Active Substance: EPERISONE HYDROCHLORIDE
     Indication: ROTATOR CUFF SYNDROME
     Dosage: 50 MG, 1X/DAY
     Route: 048
     Dates: start: 20201027, end: 20201027

REACTIONS (6)
  - Dizziness [Recovering/Resolving]
  - Hyperhidrosis [Recovering/Resolving]
  - Eructation [Recovering/Resolving]
  - Sinus arrhythmia [Recovering/Resolving]
  - Vomiting [Recovering/Resolving]
  - Palpitations [Recovering/Resolving]

NARRATIVE: CASE EVENT DATE: 20201027
